FAERS Safety Report 4295874-1 (Version None)
Quarter: 2004Q1

REPORT INFORMATION
  Report Type: 
  Country: None (occurrence: None)
  Receive Date: 20040216
  Receipt Date: 20031125
  Transmission Date: 20041129
  Serious: No
  Sender: FDA-Public Use
  Company Number: US-GLAXOSMITHKLINE-A0441099A

PATIENT
  Age: 61 Year
  Sex: Female

DRUGS (5)
  1. LAMICTAL [Suspect]
     Indication: BIPOLAR DISORDER
     Dosage: 150MG PER DAY
     Route: 048
     Dates: start: 20031001
  2. LIBRIUM [Concomitant]
  3. PROZAC [Concomitant]
  4. ADALAT [Concomitant]
  5. AMBIEN [Concomitant]

REACTIONS (6)
  - CONTUSION [None]
  - CYSTITIS [None]
  - DISORIENTATION [None]
  - INSOMNIA [None]
  - NAUSEA [None]
  - VISUAL ACUITY REDUCED [None]
